FAERS Safety Report 20179074 (Version 1)
Quarter: 2021Q4

REPORT INFORMATION
  Report Type: Spontaneous
  Country: PT (occurrence: PT)
  Receive Date: 20211214
  Receipt Date: 20211214
  Transmission Date: 20220303
  Serious: Yes (Death, Other)
  Sender: FDA-Public Use
  Company Number: PT-KERNPHARMA-20211491

PATIENT
  Age: 38 Year
  Sex: Male

DRUGS (1)
  1. AMOXICILLIN\CLAVULANIC ACID [Suspect]
     Active Substance: AMOXICILLIN\CLAVULANIC ACID
     Indication: Sepsis
     Dosage: UNK
     Route: 065

REACTIONS (3)
  - Cardio-respiratory arrest [Fatal]
  - Capnocytophaga infection [Fatal]
  - Drug ineffective [Fatal]
